FAERS Safety Report 5191082-0 (Version None)
Quarter: 2006Q4

REPORT INFORMATION
  Report Type: 
  Country: None (occurrence: None)
  Receive Date: 20061226
  Receipt Date: 20061205
  Transmission Date: 20070319
  Serious: Yes (Other)
  Sender: FDA-Public Use
  Company Number: JP-BRISTOL-MYERS SQUIBB COMPANY-13606777

PATIENT
  Age: 4 Year
  Sex: Male

DRUGS (6)
  1. ENDOXAN [Suspect]
     Indication: MALIGNANT NEOPLASM OF PLEURA
  2. ETOPOSIDE [Suspect]
     Indication: MALIGNANT NEOPLASM OF PLEURA
  3. VINCRISTINE SULFATE [Suspect]
     Indication: MALIGNANT NEOPLASM OF PLEURA
  4. CISPLATIN [Concomitant]
     Indication: MALIGNANT NEOPLASM OF PLEURA
  5. DOXORUBICIN HCL [Concomitant]
     Indication: MALIGNANT NEOPLASM OF PLEURA
  6. PIRARUBICIN [Concomitant]

REACTIONS (1)
  - ACUTE LYMPHOCYTIC LEUKAEMIA [None]
